FAERS Safety Report 20692497 (Version 2)
Quarter: 2022Q2

REPORT INFORMATION
  Report Type: Other
  Country: JP (occurrence: JP)
  Receive Date: 20220409
  Receipt Date: 20220415
  Transmission Date: 20220721
  Serious: Yes (Other)
  Sender: FDA-Public Use
  Company Number: JP-CHUGAI-2022012174

PATIENT
  Age: 61 Year
  Sex: Male

DRUGS (7)
  1. ACTEMRA [Suspect]
     Active Substance: TOCILIZUMAB
     Indication: Organising pneumonia
     Dosage: UNK
     Route: 065
  2. ACTEMRA [Suspect]
     Active Substance: TOCILIZUMAB
     Indication: COVID-19
  3. RITUXIMAB [Concomitant]
     Active Substance: RITUXIMAB
     Indication: Polyarteritis nodosa
     Dosage: UNK
     Route: 065
  4. RITUXIMAB [Concomitant]
     Active Substance: RITUXIMAB
     Indication: Polychondritis
  5. REMDESIVIR [Concomitant]
     Active Substance: REMDESIVIR
     Indication: COVID-19
     Dosage: UNK
     Route: 065
  6. BARICITINIB [Concomitant]
     Active Substance: BARICITINIB
     Indication: Organising pneumonia
     Route: 065
  7. BARICITINIB [Concomitant]
     Active Substance: BARICITINIB
     Indication: COVID-19

REACTIONS (2)
  - Cytomegalovirus test positive [Unknown]
  - Off label use [Unknown]
